FAERS Safety Report 5588585-3 (Version None)
Quarter: 2007Q4

REPORT INFORMATION
  Report Type: 
  Country: None (occurrence: None)
  Receive Date: 20071212
  Receipt Date: 20071102
  Transmission Date: 20080405
  Serious: No
  Sender: FDA-Public Use
  Company Number: 2007RL000497

PATIENT
  Age: 70 Year
  Sex: Female

DRUGS (5)
  1. LOVAZA [Suspect]
     Indication: DRUG USE FOR UNKNOWN INDICATION
     Dosage: 2 GM;QD;PO ; 2 GM;QD;PO
     Route: 048
     Dates: start: 20071001, end: 20071001
  2. LOVAZA [Suspect]
     Indication: DRUG USE FOR UNKNOWN INDICATION
     Dosage: 2 GM;QD;PO ; 2 GM;QD;PO
     Route: 048
     Dates: start: 20071001, end: 20071101
  3. DIOVAN /01319601/ [Concomitant]
  4. ZANTAC [Concomitant]
  5. VITAMINS /90003601/ [Concomitant]

REACTIONS (4)
  - ABDOMINAL PAIN UPPER [None]
  - BACK PAIN [None]
  - PELVIC DISCOMFORT [None]
  - URINARY TRACT INFECTION [None]
